FAERS Safety Report 13716940 (Version 1)
Quarter: 2017Q3

REPORT INFORMATION
  Report Type: Spontaneous
  Country: US (occurrence: US)
  Receive Date: 20170703
  Receipt Date: 20170703
  Transmission Date: 20171127
  Serious: Yes (Death, Life-Threatening, Hospitalization)
  Sender: FDA-Public Use
  Company Number: None

PATIENT
  Age: 55 Year
  Sex: Male

DRUGS (1)
  1. LIDEX [Suspect]
     Active Substance: FLUOCINONIDE
     Indication: PSORIASIS
     Route: 061
     Dates: start: 20140127, end: 20140429

REACTIONS (6)
  - Application site erythema [None]
  - Hepatitis [None]
  - Weight decreased [None]
  - Jaundice [None]
  - Application site pain [None]
  - Motor dysfunction [None]

NARRATIVE: CASE EVENT DATE: 20140127
